FAERS Safety Report 10466475 (Version 2)
Quarter: 2014Q3

REPORT INFORMATION
  Report Type: Spontaneous
  Country: DE (occurrence: DE)
  Receive Date: 20140922
  Receipt Date: 20140929
  Transmission Date: 20150326
  Serious: Yes (Other)
  Sender: FDA-Public Use
  Company Number: PHHY2014DE121922

PATIENT
  Sex: Female

DRUGS (1)
  1. EXFORGE HCT [Suspect]
     Active Substance: AMLODIPINE BESYLATE\HYDROCHLOROTHIAZIDE\VALSARTAN
     Dosage: 1 DF, (160 MG VALSA/5 MG AMLO/12.5 MG HCT)

REACTIONS (2)
  - Hypertension [Not Recovered/Not Resolved]
  - Aortic stenosis [Unknown]

NARRATIVE: CASE EVENT DATE: 2013
